FAERS Safety Report 8773268 (Version 1)
Quarter: 2012Q4

REPORT INFORMATION
  Report Type: 
  Country: US (occurrence: US)
  Receive Date: 20120907
  Receipt Date: 20120907
  Transmission Date: 20130627
  Serious: No
  Sender: FDA-Public Use
  Company Number: US-ASTRAZENECA-2012SE60538

PATIENT
  Age: 45 Year
  Sex: Female
  Weight: 77.1 kg

DRUGS (2)
  1. SEROQUEL XR [Suspect]
     Indication: BIPOLAR DISORDER
     Route: 048
     Dates: start: 201206, end: 20120818
  2. ZOLOFT [Concomitant]

REACTIONS (8)
  - Migraine [Recovered/Resolved]
  - Chills [Recovered/Resolved]
  - Anxiety [Recovering/Resolving]
  - Withdrawal syndrome [Recovering/Resolving]
  - Depression [Unknown]
  - Mood altered [Unknown]
  - Insomnia [Unknown]
  - Vision blurred [Recovered/Resolved]
